FAERS Safety Report 8537742-2 (Version None)
Quarter: 2012Q3

REPORT INFORMATION
  Report Type: 
  Country: None (occurrence: None)
  Receive Date: 20120725
  Receipt Date: 20120717
  Transmission Date: 20120928
  Serious: Yes (Other)
  Sender: FDA-Public Use
  Company Number: US-JNJFOC-20120703824

PATIENT
  Sex: Female
  Weight: 65.77 kg

DRUGS (6)
  1. CORTICOSTEROIDS NOS [Concomitant]
     Route: 065
  2. ENBREL [Suspect]
     Indication: PSORIATIC ARTHROPATHY
     Route: 058
     Dates: start: 20111004, end: 20111020
  3. CYCLOSPORINE [Suspect]
     Indication: PSORIASIS
     Route: 065
     Dates: start: 20101123, end: 20110811
  4. USTEKINUMAB [Suspect]
     Indication: PSORIASIS
     Route: 058
     Dates: start: 20101101, end: 20110920
  5. ENBREL [Suspect]
     Indication: PSORIASIS
     Route: 058
     Dates: start: 20111004, end: 20111020
  6. ULTRAVATE [Concomitant]
     Indication: PSORIASIS
     Dates: start: 20110617

REACTIONS (3)
  - DIVERTICULITIS [None]
  - PRURITUS [None]
  - DRUG INEFFECTIVE [None]
